FAERS Safety Report 18077479 (Version 1)
Quarter: 2020Q3

REPORT INFORMATION
  Report Type: Spontaneous
  Country: DE (occurrence: DE)
  Receive Date: 20200728
  Receipt Date: 20200728
  Transmission Date: 20201103
  Serious: Yes (Death)
  Sender: FDA-Public Use
  Company Number: DE-ALKEM LABORATORIES LIMITED-DE-ALKEM-2020-00282

PATIENT
  Age: 49 Year
  Sex: Female
  Weight: 52 kg

DRUGS (8)
  1. PROPOFOL. [Concomitant]
     Active Substance: PROPOFOL
     Indication: STUPOR
     Dosage: 140 MILLIGRAM
     Route: 042
     Dates: start: 20191119
  2. TRACRIUM [Concomitant]
     Active Substance: ATRACURIUM BESYLATE
     Indication: STUPOR
     Dosage: 25 MILLIGRAM
     Route: 042
     Dates: start: 20191119
  3. SEVOFLURANE. [Concomitant]
     Active Substance: SEVOFLURANE
     Indication: STUPOR
     Dosage: UNK
     Route: 065
     Dates: start: 20191119
  4. DORMICUM [Concomitant]
     Indication: PRODUCT USED FOR UNKNOWN INDICATION
     Dosage: 7.5 MILLIGRAM
     Route: 048
     Dates: start: 20191119
  5. METRONIDAZOL [Concomitant]
     Active Substance: METRONIDAZOLE
     Indication: ANTIBIOTIC PROPHYLAXIS
     Dosage: 500 MILLIGRAM
     Route: 042
     Dates: start: 20191119
  6. PREGABALIN. [Concomitant]
     Active Substance: PREGABALIN
     Indication: PRODUCT USED FOR UNKNOWN INDICATION
     Dosage: 100 MILLIGRAM, QD
     Route: 048
  7. CEFUROXIME AXETIL. [Suspect]
     Active Substance: CEFUROXIME AXETIL
     Indication: COLOSTOMY
     Dosage: 1500 MILLIGRAM
     Route: 042
     Dates: start: 20191119
  8. FENTANYL. [Concomitant]
     Active Substance: FENTANYL
     Indication: STUPOR
     Dosage: 0.1 MILLIGRAM
     Route: 042
     Dates: start: 20191119

REACTIONS (1)
  - Anaphylactic shock [Fatal]

NARRATIVE: CASE EVENT DATE: 20191119
